FAERS Safety Report 4317527-3 (Version None)
Quarter: 2004Q1

REPORT INFORMATION
  Report Type: 
  Country: None (occurrence: None)
  Receive Date: 20040312
  Receipt Date: 20040227
  Transmission Date: 20041129
  Serious: Yes (Death)
  Sender: FDA-Public Use
  Company Number: 2004-DE-00938GD (0)

PATIENT
  Age: 60 Year
  Sex: Female

DRUGS (4)
  1. METHOTREXATE [Suspect]
     Indication: CENTRAL NERVOUS SYSTEM LYMPHOMA
     Dosage: 3.5 G/M2 X 5
  2. PROCARBAZINE (PROCARBAZINE) [Suspect]
     Indication: CENTRAL NERVOUS SYSTEM LYMPHOMA
  3. VINCRISTINE [Suspect]
     Indication: CENTRAL NERVOUS SYSTEM LYMPHOMA
  4. CYTARABINE [Suspect]
     Indication: CENTRAL NERVOUS SYSTEM LYMPHOMA

REACTIONS (23)
  - ABASIA [None]
  - ANGIOPATHY [None]
  - AORTIC ATHEROSCLEROSIS [None]
  - APHONIA [None]
  - BEDRIDDEN [None]
  - CEREBRAL ATHEROSCLEROSIS [None]
  - CEREBRAL ATROPHY [None]
  - CEREBRAL VENTRICLE DILATATION [None]
  - COGNITIVE DISORDER [None]
  - CONFUSIONAL STATE [None]
  - CORONARY ARTERY ATHEROSCLEROSIS [None]
  - DRUG TOXICITY [None]
  - EXTENSOR PLANTAR RESPONSE [None]
  - GAIT DISTURBANCE [None]
  - GENERAL PHYSICAL HEALTH DETERIORATION [None]
  - HEMIPARESIS [None]
  - HYPERTONIA [None]
  - INCONTINENCE [None]
  - LEUKOENCEPHALOPATHY [None]
  - MEMORY IMPAIRMENT [None]
  - NECROSIS [None]
  - NEUROTOXICITY [None]
  - NUCLEAR MAGNETIC RESONANCE IMAGING BRAIN ABNORMAL [None]
